FAERS Safety Report 14206264 (Version 3)
Quarter: 2017Q4

REPORT INFORMATION
  Report Type: Report from Study
  Country: None (occurrence: CA)
  Receive Date: 20171120
  Receipt Date: 20171213
  Transmission Date: 20180321
  Serious: Yes (Hospitalization, Other)
  Sender: FDA-Public Use
  Company Number: CA-ABBVIE-17K-028-2165196-00

PATIENT
  Age: 25 Year
  Sex: Male

DRUGS (2)
  1. HUMIRA [Suspect]
     Active Substance: ADALIMUMAB
     Indication: CROHN^S DISEASE
     Route: 058
     Dates: start: 20170920, end: 20171023
  2. HUMIRA [Suspect]
     Active Substance: ADALIMUMAB
     Dosage: BOOSTER DOSE
     Route: 058
     Dates: start: 20171025, end: 20171025

REACTIONS (5)
  - Cholecystectomy [Unknown]
  - Enteritis infectious [Recovering/Resolving]
  - Purulence [Recovering/Resolving]
  - Post procedural infection [Recovering/Resolving]
  - Small intestinal perforation [Recovering/Resolving]

NARRATIVE: CASE EVENT DATE: 2017
